FAERS Safety Report 18147735 (Version 2)
Quarter: 2020Q3

REPORT INFORMATION
  Report Type: Spontaneous
  Country: US (occurrence: US)
  Receive Date: 20200814
  Receipt Date: 20200817
  Transmission Date: 20201103
  Serious: Yes (Death)
  Sender: FDA-Public Use
  Company Number: US-BIOVITRUM-2020US4202

PATIENT
  Age: 76 Year
  Sex: Female

DRUGS (2)
  1. ANAKINRA [Suspect]
     Active Substance: ANAKINRA
     Indication: IMMUNE EFFECTOR CELL-ASSOCIATED NEUROTOXICITY SYNDROME
     Route: 058
  2. DEXAMETHASONE. [Concomitant]
     Active Substance: DEXAMETHASONE
     Indication: IMMUNE EFFECTOR CELL-ASSOCIATED NEUROTOXICITY SYNDROME
     Dosage: CUMULATIVE DOSE OF 166 MG

REACTIONS (3)
  - Off label use [Recovered/Resolved]
  - Immune effector cell-associated neurotoxicity syndrome [Fatal]
  - Disease progression [Fatal]
